FAERS Safety Report 9625405 (Version 1)
Quarter: 2013Q4

REPORT INFORMATION
  Report Type: Spontaneous
  Country: DE (occurrence: DE)
  Receive Date: 20131016
  Receipt Date: 20131016
  Transmission Date: 20140711
  Serious: Yes (Life-Threatening, Hospitalization, Other)
  Sender: FDA-Public Use
  Company Number: DE-009507513-1310DEU006205

PATIENT
  Age: 73 Year
  Sex: Male

DRUGS (1)
  1. MAXALT 10MG TABLETTEN [Suspect]
     Indication: MIGRAINE
     Dosage: UNK, PRN
     Route: 048
     Dates: start: 1998

REACTIONS (4)
  - Subdural haematoma [Recovering/Resolving]
  - Epilepsy [Unknown]
  - Cranial operation [Unknown]
  - Migraine [Unknown]
